FAERS Safety Report 5587446-3 (Version None)
Quarter: 2008Q1

REPORT INFORMATION
  Report Type: 
  Country: None (occurrence: None)
  Receive Date: 20080110
  Receipt Date: 20080107
  Transmission Date: 20080703
  Serious: Yes (Death)
  Sender: FDA-Public Use
  Company Number: NL-BOEHRINGER INGELHEIM PHARMACEUTICALS, INC.-2008-NL-00008NL

PATIENT
  Sex: Male

DRUGS (1)
  1. SIFROL 0.088MG [Suspect]

REACTIONS (1)
  - DEATH [None]
